FAERS Safety Report 22136392 (Version 4)
Quarter: 2023Q2

REPORT INFORMATION
  Report Type: Report from Study
  Country: US (occurrence: US)
  Receive Date: 20230324
  Receipt Date: 20230428
  Transmission Date: 20230721
  Serious: Yes (Life-Threatening, Hospitalization, Other)
  Sender: FDA-Public Use
  Company Number: US-HORIZON THERAPEUTICS-HZN-2022-003043

PATIENT

DRUGS (92)
  1. GLYCEROL PHENYLBUTYRATE [Suspect]
     Active Substance: GLYCEROL PHENYLBUTYRATE
     Indication: Urea cycle disorder
     Dosage: 2.1 ML
     Route: 048
     Dates: start: 20220412, end: 20220412
  2. GLYCEROL PHENYLBUTYRATE [Suspect]
     Active Substance: GLYCEROL PHENYLBUTYRATE
     Dosage: 2.8 ML
     Route: 048
     Dates: start: 20220413, end: 20220417
  3. GLYCEROL PHENYLBUTYRATE [Suspect]
     Active Substance: GLYCEROL PHENYLBUTYRATE
     Dosage: 3.5 ML
     Route: 048
     Dates: start: 20220418, end: 20220418
  4. GLYCEROL PHENYLBUTYRATE [Suspect]
     Active Substance: GLYCEROL PHENYLBUTYRATE
     Dosage: 4.2 ML
     Route: 048
     Dates: start: 20220419, end: 20220419
  5. GLYCEROL PHENYLBUTYRATE [Suspect]
     Active Substance: GLYCEROL PHENYLBUTYRATE
     Dosage: 2.8 ML
     Route: 048
     Dates: start: 20220420, end: 20220424
  6. GLYCEROL PHENYLBUTYRATE [Suspect]
     Active Substance: GLYCEROL PHENYLBUTYRATE
     Dosage: 3.5 ML
     Route: 048
     Dates: start: 20220425, end: 20220426
  7. GLYCEROL PHENYLBUTYRATE [Suspect]
     Active Substance: GLYCEROL PHENYLBUTYRATE
     Dosage: 2.4 ML
     Route: 048
     Dates: start: 20220427, end: 20220518
  8. GLYCEROL PHENYLBUTYRATE [Suspect]
     Active Substance: GLYCEROL PHENYLBUTYRATE
     Dosage: 2.2 ML
     Route: 048
     Dates: start: 20220519, end: 20220601
  9. GLYCEROL PHENYLBUTYRATE [Suspect]
     Active Substance: GLYCEROL PHENYLBUTYRATE
     Dosage: 2.4 ML
     Route: 048
     Dates: start: 20220602, end: 20220620
  10. GLYCEROL PHENYLBUTYRATE [Suspect]
     Active Substance: GLYCEROL PHENYLBUTYRATE
     Dosage: 2.7 ML
     Route: 048
     Dates: start: 20220621, end: 20220704
  11. GLYCEROL PHENYLBUTYRATE [Suspect]
     Active Substance: GLYCEROL PHENYLBUTYRATE
     Dosage: 3 ML
     Route: 048
     Dates: start: 20220705, end: 20220720
  12. GLYCEROL PHENYLBUTYRATE [Suspect]
     Active Substance: GLYCEROL PHENYLBUTYRATE
     Dosage: 3.3 ML
     Route: 048
     Dates: start: 20220721, end: 20220727
  13. ATROPINE [Concomitant]
     Active Substance: ATROPINE
     Indication: Cardiac failure acute
     Dosage: 0.07 MG, PRN (INJECTABLE-PEDS)
     Dates: start: 20220413, end: 20220414
  14. ATROPINE [Concomitant]
     Active Substance: ATROPINE
     Dosage: 0.07 MG, PRN (INJECTABLE-PEDS)
     Dates: start: 20220413, end: 20220419
  15. CITRULLINE [Concomitant]
     Active Substance: CITRULLINE
     Indication: Ornithine transcarbamoylase deficiency
     Dosage: 715 MG, QD (ORAL LIQUID-PEDS)
     Route: 048
     Dates: start: 20220413, end: 20220414
  16. CITRULLINE [Concomitant]
     Active Substance: CITRULLINE
     Dosage: 895 MG, QD (ORAL LIQUID-PEDS)
     Route: 048
     Dates: start: 20220413, end: 20220414
  17. CITRULLINE [Concomitant]
     Active Substance: CITRULLINE
     Dosage: 715 MG, QD (ORAL LIQUID-PEDS)
     Route: 048
     Dates: start: 20220420, end: 20220420
  18. CITRULLINE [Concomitant]
     Active Substance: CITRULLINE
     Dosage: 895 MG, QD (ORAL LIQUID-PEDS)
     Route: 048
     Dates: start: 20220420, end: 20220425
  19. CITRULLINE [Concomitant]
     Active Substance: CITRULLINE
     Dosage: 880 MG, QD (ORAL LIQUID-PEDS)
     Route: 048
     Dates: start: 20220425, end: 20220426
  20. CITRULLINE [Concomitant]
     Active Substance: CITRULLINE
     Dosage: 1100 MG, QD
     Route: 048
     Dates: start: 20220426, end: 20220429
  21. CITRULLINE [Concomitant]
     Active Substance: CITRULLINE
     Dosage: 1200 MG, QD (ORAL LIQUID-PEDS)
     Route: 048
     Dates: start: 20220518, end: 20220609
  22. CITRULLINE [Concomitant]
     Active Substance: CITRULLINE
     Dosage: 1335 MG, QD (ORAL LIQUID-PEDS)
     Route: 048
     Dates: start: 20220609, end: 20220617
  23. CITRULLINE [Concomitant]
     Active Substance: CITRULLINE
     Dosage: 1440 MG, QD (ORAL LIQUID-PEDS)
     Route: 048
     Dates: start: 20220617, end: 20220623
  24. CITRULLINE [Concomitant]
     Active Substance: CITRULLINE
     Dosage: 1900 MG, QD (ORAL LIQUID-PEDS)
     Route: 048
     Dates: start: 20220726, end: 20220728
  25. GLYCERIN [Concomitant]
     Active Substance: GLYCERIN
     Indication: Constipation
     Dosage: 0.25, QD (RECTAL-PEDS)
     Route: 054
     Dates: start: 20220413, end: 20220427
  26. GLUCAGON [Concomitant]
     Active Substance: GLUCAGON
     Indication: Hypoglycaemia
     Dosage: 1 MG, PRN (INJECTABLE-PEDS)
     Route: 050
     Dates: start: 20220413, end: 20220415
  27. GLUCAGON [Concomitant]
     Active Substance: GLUCAGON
     Dosage: 0.5 MG, PRN, INJECTABLE-PEDS
     Route: 030
     Dates: start: 20220726, end: 20220728
  28. DIAZOXIDE [Concomitant]
     Active Substance: DIAZOXIDE
     Indication: Hypoglycaemia
     Dosage: 12 MG, Q8 (ORAL LIQUID-PEDS)
     Route: 050
     Dates: start: 20220413, end: 20220415
  29. DIAZOXIDE [Concomitant]
     Active Substance: DIAZOXIDE
     Dosage: 9.5 MG, Q8 (ORAL LIQUIDS-PEDS)
     Route: 050
     Dates: start: 20220415, end: 20220417
  30. DIAZOXIDE [Concomitant]
     Active Substance: DIAZOXIDE
     Dosage: 7.2 MG, Q8 (ORAL LIQUIDS-PEDS)
     Route: 048
     Dates: start: 20220417, end: 20220429
  31. CHLOROTHIAZIDE [Concomitant]
     Active Substance: CHLOROTHIAZIDE
     Indication: Polyuria
     Dosage: 18 MG, Q8 (ORAL LIQUID-PEDS)
     Route: 048
     Dates: start: 20220413, end: 20220417
  32. CHLOROTHIAZIDE [Concomitant]
     Active Substance: CHLOROTHIAZIDE
     Dosage: 11 MG, Q8 (ORAL LIQUIDS-PEDS)
     Route: 048
     Dates: start: 20220417, end: 20220429
  33. EPINEPHRINE [Concomitant]
     Active Substance: EPINEPHRINE
     Indication: Cardiac failure acute
     Dosage: 0.04 MG, PRN (INJECTABLE-PEDS)
     Route: 050
     Dates: start: 20220413, end: 20220420
  34. PHENOBARBITAL [Concomitant]
     Active Substance: PHENOBARBITAL
     Indication: Seizure
     Dosage: 9 MG, BID (ORAL LIQUID-PEDS)
     Route: 048
     Dates: start: 20220413, end: 20220427
  35. PHENOBARBITAL [Concomitant]
     Active Substance: PHENOBARBITAL
     Dosage: 11 MG, BID, ORAL LIQUID-PEDS
     Route: 048
     Dates: start: 20220428, end: 20220429
  36. PHENOBARBITAL [Concomitant]
     Active Substance: PHENOBARBITAL
     Dosage: 6 MG, BID, ORAL LIQUID-PEDS
     Route: 048
     Dates: start: 20220518, end: 20220522
  37. PHENOBARBITAL [Concomitant]
     Active Substance: PHENOBARBITAL
     Dosage: 4 MG, BID, ORAL LIQUID-PEDS
     Route: 048
     Dates: start: 20220522, end: 20220525
  38. PHENOBARBITAL [Concomitant]
     Active Substance: PHENOBARBITAL
     Dosage: 2 MG, BID, ORAL LIQUID-PEDS
     Route: 048
     Dates: start: 20220526, end: 20220530
  39. HEPARIN [Concomitant]
     Active Substance: HEPARIN SODIUM
     Indication: Catheter management
     Dosage: 0.5 CONTINOUS (20 UNIT/NACL 0.9% 20 ML INFUSION- NEO)
     Route: 050
     Dates: start: 20220413, end: 20220414
  40. HEPARIN [Concomitant]
     Active Substance: HEPARIN SODIUM
     Dosage: UNK, 50 UNITSPAPAVERINE
     Dates: start: 20220414, end: 20220417
  41. HEPARIN SODIUM [Concomitant]
     Active Substance: HEPARIN SODIUM
     Indication: Catheter management
     Dosage: 3 ML, PRN, Q8 (10 UNIT/ML PF INJECTABLE- PEDS)
     Dates: start: 20220413, end: 20220417
  42. HEPARIN SODIUM [Concomitant]
     Active Substance: HEPARIN SODIUM
     Dosage: 3 ML, TID (10 UNIT/ML PF INJECTABLE- PEDS)
     Dates: start: 20220417, end: 20220427
  43. HEPARIN SODIUM [Concomitant]
     Active Substance: HEPARIN SODIUM
     Dosage: 1ML, TID (10 UNIT/ML PF INJECTABLE- PEDS)
     Dates: start: 20220519, end: 20220623
  44. HEPARIN SODIUM [Concomitant]
     Active Substance: HEPARIN SODIUM
     Dosage: 3 ML, TID (10 UNIT/ML PF INJECTABLE- PEDS)
     Dates: start: 20220726, end: 20220728
  45. HEPARIN SODIUM [Concomitant]
     Active Substance: HEPARIN SODIUM
     Dosage: 3 ML, TID (10 UNIT/ML PF INJECTABLE- PEDS)
     Dates: start: 20220727, end: 20220728
  46. SODIUM PHENYLACETATE [Concomitant]
     Active Substance: SODIUM PHENYLACETATE
     Indication: Hyperammonaemia
     Dosage: 89.5 ML, QD (SODIUM BENZOATE IV PIGGY BACK-PEDS)
     Route: 050
     Dates: start: 20220413, end: 20220416
  47. SODIUM PHENYLACETATE [Concomitant]
     Active Substance: SODIUM PHENYLACETATE
     Dosage: 8.95 ML, QD (SODIUM BENZOATE IV PIGGY BACK-PEDS)
     Route: 050
     Dates: start: 20220414, end: 20220416
  48. SODIUM PHENYLACETATE [Concomitant]
     Active Substance: SODIUM PHENYLACETATE
     Dosage: 110.25 ML, PRN (SODIUM BENZOATE IV PIGGY BACK-PEDS)
     Route: 050
     Dates: start: 20220426, end: 20220426
  49. SODIUM PHENYLACETATE [Concomitant]
     Active Substance: SODIUM PHENYLACETATE
     Dosage: 110.25 ML, PRN (SODIUM BENZOATE IV PIGGY BACK-PEDS)
     Route: 050
     Dates: start: 20220426, end: 20220427
  50. SODIUM PHENYLACETATE [Concomitant]
     Active Substance: SODIUM PHENYLACETATE
     Dosage: 55.13 ML, PRN (SODIUM BENZOATE IV PIGGY BACK-PEDS)
     Route: 050
     Dates: start: 20220427, end: 20220427
  51. SODIUM PHENYLACETATE [Concomitant]
     Active Substance: SODIUM PHENYLACETATE
     Dosage: 165.4 ML, QD (SODIUM BENZOATE IV PIGGY BACK-PEDS)
     Route: 050
     Dates: start: 20220427, end: 20220428
  52. SODIUM PHENYLACETATE [Concomitant]
     Active Substance: SODIUM PHENYLACETATE
     Dosage: 110.25 ML, QD
     Route: 050
     Dates: start: 20220428, end: 20220429
  53. SODIUM CHLORIDE [Concomitant]
     Active Substance: SODIUM CHLORIDE
     Dosage: 20 UNIT/NACL 0.9% 20 ML INFUSION- NEO
  54. FERROUS SULFATE [Concomitant]
     Active Substance: FERROUS SULFATE
     Indication: Iron deficiency
     Dosage: 12 MG Q12H
     Route: 048
     Dates: start: 20220421, end: 20220429
  55. FERROUS SULFATE [Concomitant]
     Active Substance: FERROUS SULFATE
     Dosage: 12 MG Q12H
     Route: 048
     Dates: start: 20220518, end: 20220602
  56. FERROUS SULFATE [Concomitant]
     Active Substance: FERROUS SULFATE
     Dosage: 15 MG Q12H
     Route: 048
     Dates: start: 20220602, end: 20220614
  57. FERROUS SULFATE [Concomitant]
     Active Substance: FERROUS SULFATE
     Dosage: 15 MG Q12H
     Route: 048
     Dates: start: 20220614, end: 20220623
  58. FERROUS SULFATE [Concomitant]
     Active Substance: FERROUS SULFATE
     Dosage: 15 MG Q12H
     Route: 048
     Dates: start: 20220726, end: 20220728
  59. KEPPRA [Concomitant]
     Active Substance: LEVETIRACETAM
     Indication: Seizure
     Dosage: 150 MG Q12H
     Route: 050
     Dates: start: 20220519, end: 20220614
  60. KEPPRA [Concomitant]
     Active Substance: LEVETIRACETAM
     Dosage: 150 MG Q12H
     Route: 050
     Dates: start: 20220614, end: 20220623
  61. KEPPRA [Concomitant]
     Active Substance: LEVETIRACETAM
     Dosage: 150 MG Q12H
     Route: 050
     Dates: start: 20220726, end: 20220728
  62. ZINC OXIDE (DESTIN) [Concomitant]
     Indication: Dermatitis diaper
     Dosage: 1 DOSE 5 TIMES/DAY (20% TROPICAL-NEO OINTMENT)
     Route: 061
     Dates: start: 20220519, end: 20220623
  63. ZINC OXIDE (DESTIN) [Concomitant]
     Dosage: 1DOSE, TID (20 % TOPICAL-NEOOINTMENT)
     Route: 061
     Dates: start: 20220726, end: 20220728
  64. BACITRACIN [Concomitant]
     Active Substance: BACITRACIN
     Indication: Prophylaxis
     Dosage: UNK, QID, (500 UNITS/GRAM TOPICAL-PEDS)
     Route: 061
     Dates: start: 20220613, end: 20220623
  65. EPOETIN ALFA [Concomitant]
     Active Substance: ERYTHROPOIETIN
     Indication: Anaemia
     Dosage: 180 TIW, INJECTABLE-PEDS IN SODIUM CHLORIDE 0.9% 0.25ML
     Route: 058
     Dates: start: 20220415, end: 20220427
  66. EPOETIN ALFA [Concomitant]
     Active Substance: ERYTHROPOIETIN
     Dosage: 1325 TIW, INJECTABLE-PEDS IN SODIUM CHLORIDE 0.9% 0.25ML
     Route: 058
     Dates: start: 20220429, end: 20220429
  67. EPOETIN ALFA [Concomitant]
     Active Substance: ERYTHROPOIETIN
     Dosage: 220 TIW, INJECTABLE-PEDS IN SODIUM CHLORIDE 0.9% 0.25ML
     Route: 058
     Dates: start: 20220518, end: 20220527
  68. EPOETIN ALFA [Concomitant]
     Active Substance: ERYTHROPOIETIN
     Dosage: 300 TIW, INJECTABLE-PEDS IN SODIUM CHLORIDE 0.9% 0.25ML
     Route: 058
     Dates: start: 20220527, end: 20220602
  69. EPOETIN ALFA [Concomitant]
     Active Substance: ERYTHROPOIETIN
     Dosage: 535 TIW, INJECTABLE-PEDS IN SODIUM CHLORIDE 0.9% 0.25ML
     Route: 058
     Dates: start: 20220602, end: 20220615
  70. EPOETIN ALFA [Concomitant]
     Active Substance: ERYTHROPOIETIN
     Dosage: 1100 TIW, INJECTABLE-PEDS IN SODIUM CHLORIDE 0.9% 0.25ML
     Route: 058
     Dates: start: 20220615, end: 20220623
  71. EPOETIN ALFA [Concomitant]
     Active Substance: ERYTHROPOIETIN
     Dosage: 1100 BIW, INJECTABLE-PEDS IN SODIUM CHLORIDE 0.9% 0.25ML
     Route: 058
     Dates: start: 20220726, end: 20220728
  72. ARGININE HCL [ARGININE HYDROCHLORIDE] [Concomitant]
     Indication: Hyperammonaemia
     Dosage: 715 MG, QD, (IV PIGGY BACK-PEDS)
     Route: 042
     Dates: start: 20220413, end: 20220415
  73. ARGININE HCL [ARGININE HYDROCHLORIDE] [Concomitant]
     Dosage: 440 MG, PRN, IV PIGGYBACK- PEDS
     Route: 042
     Dates: start: 20220426, end: 20220427
  74. ARGININE HCL [ARGININE HYDROCHLORIDE] [Concomitant]
     Dosage: 880 MG, QD, IV PIGGYBACK- PEDS
     Route: 042
     Dates: start: 20220427, end: 20220429
  75. DIURIL [CHLOROTHIAZIDE] [Concomitant]
     Dosage: 11 MG, TID, ORAL LIQUID-PEDS
     Route: 048
     Dates: start: 20220518, end: 20220520
  76. DIURIL [CHLOROTHIAZIDE] [Concomitant]
     Dosage: 13 MG, TID, ORAL LIQUID- PEDS
     Route: 048
     Dates: start: 20220520, end: 20220610
  77. DIURIL [CHLOROTHIAZIDE] [Concomitant]
     Dosage: 15 MG, TID, ORAL LIQUID- PEDS
     Route: 048
     Dates: start: 20220610, end: 20220614
  78. DIURIL [CHLOROTHIAZIDE] [Concomitant]
     Dosage: 15 MG, TID, ORAL LIQUID- PEDS
     Route: 048
     Dates: start: 20220614, end: 20220616
  79. DIURIL [CHLOROTHIAZIDE] [Concomitant]
     Dosage: 17 MG, TID, ORAL LIQUID- PEDS
     Route: 048
     Dates: start: 20220616, end: 20220620
  80. DIURIL [CHLOROTHIAZIDE] [Concomitant]
     Dosage: 20 MG, TID, ORAL LIQUID- PEDS
     Route: 048
     Dates: start: 20220620, end: 20220623
  81. DIURIL [CHLOROTHIAZIDE] [Concomitant]
     Dosage: 17 MG, TID, ORAL LIQUID- PEDS
     Route: 048
     Dates: start: 20220726, end: 20220727
  82. DIURIL [CHLOROTHIAZIDE] [Concomitant]
     Dosage: 20 MG, TID, ORAL LIQUID- PEDS
     Route: 048
     Dates: start: 20220727, end: 20220728
  83. LMX 4 [Concomitant]
     Indication: Pain
     Dosage: 1 PRN, 4% TOP CRMTEGADERM DRESSING KIT- PEDS
     Route: 061
     Dates: start: 20220518, end: 20220610
  84. LMX 4 [Concomitant]
     Dosage: 1 PRN, 4% TOP CRMTEGADERM DRESSING KIT- PEDS
     Route: 061
     Dates: start: 20220726, end: 20220728
  85. PROGLYCEM [Concomitant]
     Active Substance: DIAZOXIDE
     Dosage: 7.2 MG, TID, ORAL LIQUID- PEDS
     Route: 048
     Dates: start: 20220518, end: 20220520
  86. PROGLYCEM [Concomitant]
     Active Substance: DIAZOXIDE
     Dosage: 10 MG, TID, ORAL LIQUID- PEDS
     Route: 048
     Dates: start: 20220520, end: 20220523
  87. PROGLYCEM [Concomitant]
     Active Substance: DIAZOXIDE
     Dosage: 13 MG, TID, ORAL LIQUID- PEDS
     Route: 048
     Dates: start: 20220523, end: 20220610
  88. PROGLYCEM [Concomitant]
     Active Substance: DIAZOXIDE
     Dosage: 15 MG, TID, ORAL LIQUID- PEDS
     Route: 048
     Dates: start: 20220610, end: 20220616
  89. PROGLYCEM [Concomitant]
     Active Substance: DIAZOXIDE
     Dosage: 17 MG, TID, ORAL LIQUID- PEDS
     Route: 048
     Dates: start: 20220616, end: 20220620
  90. PROGLYCEM [Concomitant]
     Active Substance: DIAZOXIDE
     Dosage: 20 MG, TID, ORAL LIQUID- PEDS
     Route: 048
     Dates: start: 20220620, end: 20220623
  91. PROGLYCEM [Concomitant]
     Active Substance: DIAZOXIDE
     Dosage: 20 MG, TID, ORAL LIQUID- PEDS
     Route: 048
     Dates: start: 20220726, end: 20220727
  92. PROGLYCEM [Concomitant]
     Active Substance: DIAZOXIDE
     Dosage: 15 MG, TID, ORAL LIQUID- PEDS
     Route: 048
     Dates: start: 20220727, end: 20220728

REACTIONS (2)
  - Hyperammonaemic crisis [Recovered/Resolved]
  - Neutropenia [Recovered/Resolved]

NARRATIVE: CASE EVENT DATE: 20220413
